FAERS Safety Report 16799499 (Version 1)
Quarter: 2019Q3

REPORT INFORMATION
  Report Type: Spontaneous
  Country: US (occurrence: US)
  Receive Date: 20190912
  Receipt Date: 20190912
  Transmission Date: 20191005
  Serious: Yes (Other)
  Sender: FDA-Public Use
  Company Number: US-PFIZER INC-2019393657

PATIENT
  Age: 10 Year
  Sex: Female

DRUGS (1)
  1. SIROLIMUS. [Suspect]
     Active Substance: SIROLIMUS
     Dosage: UNK

REACTIONS (7)
  - Haemorrhage [Unknown]
  - Drug ineffective [Unknown]
  - Abdominal pain [Unknown]
  - Off label use [Unknown]
  - Lymphatic disorder [Unknown]
  - Quality of life decreased [Unknown]
  - Product use issue [Unknown]
